FAERS Safety Report 5155187-2 (Version None)
Quarter: 2006Q4

REPORT INFORMATION
  Report Type: 
  Country: None (occurrence: None)
  Receive Date: 20061121
  Receipt Date: 20061114
  Transmission Date: 20070319
  Serious: Yes (Hospitalization)
  Sender: FDA-Public Use
  Company Number: US-JNJFOC-20061103547

PATIENT
  Age: 51 Year
  Sex: Female

DRUGS (5)
  1. REMICADE [Suspect]
     Indication: DRUG USE FOR UNKNOWN INDICATION
     Route: 042
  2. STEROIDS [Concomitant]
  3. CYTOXAN [Concomitant]
  4. IMURAN [Concomitant]
  5. MMS [Concomitant]

REACTIONS (4)
  - BRAIN MASS [None]
  - CEREBELLAR HAEMORRHAGE [None]
  - GRANULOMA [None]
  - VASCULITIS [None]
